FAERS Safety Report 5378973-2 (Version None)
Quarter: 2007Q3

REPORT INFORMATION
  Report Type: 
  Country: None (occurrence: None)
  Receive Date: 20070705
  Receipt Date: 20070629
  Transmission Date: 20080115
  Serious: Yes (Hospitalization)
  Sender: FDA-Public Use
  Company Number: FRWYE947902JUL07

PATIENT
  Age: 4 Month
  Sex: Male
  Weight: 7.69 kg

DRUGS (2)
  1. ADVIL ENFANTS ET NOURRISSONS [Suspect]
     Dosage: 1 WEIGHT-ADJUSTED DOSE
     Route: 048
     Dates: start: 20070526, end: 20070526
  2. DOLIPRANE [Concomitant]
     Dosage: 1 SUPPOS 100 MG IF NECESSARY
     Route: 054
     Dates: start: 20070525

REACTIONS (13)
  - CYANOSIS [None]
  - HAEMATEMESIS [None]
  - INTERCOSTAL RETRACTION [None]
  - LYMPHADENOPATHY [None]
  - LYMPHOCYTE COUNT DECREASED [None]
  - MOBILITY DECREASED [None]
  - NEUTROPHIL COUNT INCREASED [None]
  - PAIN [None]
  - PERIPHERAL COLDNESS [None]
  - TACHYCARDIA [None]
  - TACHYPNOEA [None]
  - TYMPANIC MEMBRANE HYPERAEMIA [None]
  - WHITE BLOOD CELL COUNT INCREASED [None]
